FAERS Safety Report 7480751-5 (Version None)
Quarter: 2011Q2

REPORT INFORMATION
  Report Type: 
  Country: None (occurrence: None)
  Receive Date: 20110512
  Receipt Date: 20110512
  Transmission Date: 20111010
  Serious: Yes (Life-Threatening, Hospitalization, Disabling)
  Sender: FDA-Public Use
  Company Number: None

PATIENT
  Age: 69 Year
  Sex: Male
  Weight: 63.5036 kg

DRUGS (2)
  1. MIRAPEX [Concomitant]
  2. PRAMIPEXOLE DIHYDROCHLORIDE [Suspect]
     Indication: PARKINSON'S DISEASE
     Dosage: 0.5MG 3X A DAY PO
     Route: 048
     Dates: start: 20110309, end: 20110509

REACTIONS (4)
  - FEAR [None]
  - SELF-INJURIOUS IDEATION [None]
  - HALLUCINATIONS, MIXED [None]
  - AGGRESSION [None]
